FAERS Safety Report 6054950-3 (Version None)
Quarter: 2009Q1

REPORT INFORMATION
  Report Type: 
  Country: None (occurrence: None)
  Receive Date: 20090128
  Receipt Date: 20090123
  Transmission Date: 20090719
  Serious: Yes (Death)
  Sender: FDA-Public Use
  Company Number: PHHY2009JP02535

PATIENT
  Age: 6 Year
  Sex: Male

DRUGS (3)
  1. CERTICAN [Suspect]
     Indication: LIVER TRANSPLANT
     Dosage: 0.5 MG/DAY
     Route: 048
     Dates: start: 20090108, end: 20090101
  2. CERTICAN [Suspect]
     Indication: LIVER TRANSPLANT REJECTION
  3. NEORAL [Suspect]
     Indication: LIVER TRANSPLANT
     Dosage: UNK
     Route: 048
     Dates: start: 20090108

REACTIONS (1)
  - MULTI-ORGAN FAILURE [None]
